FAERS Safety Report 23803947 (Version 2)
Quarter: 2024Q2

REPORT INFORMATION
  Report Type: Report from Study
  Country: FI (occurrence: FI)
  Receive Date: 20240501
  Receipt Date: 20240516
  Transmission Date: 20240715
  Serious: Yes (Other)
  Sender: FDA-Public Use
  Company Number: FI-CAMURUS AB-FI-CAM-24-00501

PATIENT
  Sex: Male

DRUGS (2)
  1. BUPRENORPHINE [Suspect]
     Active Substance: BUPRENORPHINE
     Indication: Drug withdrawal maintenance therapy
     Dosage: 64 MILLIGRAM EVERY 25 DAYS
     Route: 064
  2. BUPRENORPHINE [Suspect]
     Active Substance: BUPRENORPHINE
     Dosage: 64 MILLIGRAM EVERY 28 DAYS
     Route: 064

REACTIONS (2)
  - Neonatal respiratory distress [Unknown]
  - Maternal exposure during pregnancy [Unknown]
